FAERS Safety Report 5987461-1 (Version None)
Quarter: 2008Q4

REPORT INFORMATION
  Report Type: 
  Country: None (occurrence: None)
  Receive Date: 20081209
  Receipt Date: 20081204
  Transmission Date: 20090506
  Serious: Yes (Death)
  Sender: FDA-Public Use
  Company Number: RS-ABBOTT-08P-303-0491013-00

PATIENT
  Age: 66 Year
  Sex: Male
  Weight: 82 kg

DRUGS (11)
  1. SEVORANE LIQUID FOR INHALATION [Suspect]
     Indication: ANAESTHESIA
     Route: 055
     Dates: start: 20080826, end: 20080826
  2. SEVORANE LIQUID FOR INHALATION [Suspect]
     Indication: CARDIAC OPERATION
  3. HEPARIN [Suspect]
     Indication: INTRAOPERATIVE CARE
  4. MIDAZOLAM HCL [Concomitant]
     Indication: DRUG USE FOR UNKNOWN INDICATION
  5. SUFENTANYL [Concomitant]
     Indication: DRUG USE FOR UNKNOWN INDICATION
  6. PANCURONIUM BROMIDE [Concomitant]
     Indication: DRUG USE FOR UNKNOWN INDICATION
  7. ISOSORBIDE MONONITRATE [Concomitant]
     Indication: DRUG USE FOR UNKNOWN INDICATION
  8. MOLSIDOMINE [Concomitant]
     Indication: DRUG USE FOR UNKNOWN INDICATION
  9. FOSINOPRIL SODIUM [Concomitant]
     Indication: DRUG USE FOR UNKNOWN INDICATION
  10. CEFUROXIME SODIUM [Concomitant]
     Indication: DRUG USE FOR UNKNOWN INDICATION
  11. NADROPARIN CALCIUM [Concomitant]
     Indication: DRUG USE FOR UNKNOWN INDICATION

REACTIONS (3)
  - HEPATIC NECROSIS [None]
  - HEPATORENAL SYNDROME [None]
  - RENAL FAILURE ACUTE [None]
